FAERS Safety Report 5090101-X (Version None)
Quarter: 2006Q3

REPORT INFORMATION
  Report Type: 
  Country: None (occurrence: None)
  Receive Date: 20060828
  Receipt Date: 20000524
  Transmission Date: 20061208
  Serious: Yes (Other)
  Sender: FDA-Public Use
  Company Number: FR-ROCHE-237332

PATIENT
  Age: 28 Year
  Sex: Male
  Weight: 87 kg

DRUGS (4)
  1. ACCUTANE [Suspect]
     Indication: ACNE
     Route: 048
     Dates: start: 19991127, end: 20000325
  2. ACCUTANE [Suspect]
     Route: 048
     Dates: start: 19991026, end: 19991126
  3. DOLIPRANE [Concomitant]
     Route: 048
     Dates: start: 19991125, end: 19991205
  4. EFFERALGAN [Concomitant]
     Route: 048
     Dates: start: 19991125, end: 19991205

REACTIONS (5)
  - ARTHRALGIA [None]
  - DRY EYE [None]
  - OPTIC NEURITIS [None]
  - VERTIGO [None]
  - VISION BLURRED [None]
